FAERS Safety Report 9079570 (Version 2)
Quarter: 2013Q2

REPORT INFORMATION
  Report Type: Report from Study
  Country: AU (occurrence: AU)
  Receive Date: 20130130
  Receipt Date: 20130423
  Transmission Date: 20140414
  Serious: Yes (Disabling, Other)
  Sender: FDA-Public Use
  Company Number: AU-ROCHE-1185522

PATIENT
  Age: 65 Year
  Sex: Female

DRUGS (1)
  1. ACTEMRA [Suspect]
     Indication: RHEUMATOID ARTHRITIS
     Route: 042
     Dates: end: 20121221

REACTIONS (4)
  - Intestinal haemorrhage [Not Recovered/Not Resolved]
  - Large intestine polyp [Unknown]
  - Diverticulum [Unknown]
  - Myocardial infarction [Unknown]
